FAERS Safety Report 5812084-4 (Version None)
Quarter: 2008Q3

REPORT INFORMATION
  Report Type: 
  Country: None (occurrence: None)
  Receive Date: 20080716
  Receipt Date: 20080627
  Transmission Date: 20090109
  Serious: No
  Sender: FDA-Public Use
  Company Number: US-BOEHRINGER INGELHEIM GMBH, GERMANY-2008-BP-10109BP

PATIENT
  Sex: Male

DRUGS (4)
  1. FLOMAX [Suspect]
     Indication: URINE FLOW DECREASED
     Route: 048
     Dates: start: 20060101, end: 20070101
  2. ASPIRIN [Concomitant]
     Indication: PROPHYLAXIS
     Route: 048
  3. LEUKINE [Concomitant]
  4. ESTROGENIC SUBSTANCE [Concomitant]
     Indication: OESTROGEN REPLACEMENT THERAPY
     Route: 061

REACTIONS (2)
  - FLANK PAIN [None]
  - PYREXIA [None]
